FAERS Safety Report 12649250 (Version 3)
Quarter: 2017Q2

REPORT INFORMATION
  Report Type: Report from Study
  Country: US (occurrence: US)
  Receive Date: 20160812
  Receipt Date: 20170614
  Transmission Date: 20170830
  Serious: Yes (Hospitalization)
  Sender: FDA-Public Use
  Company Number: US-ACTELION-A-US2016-140343

PATIENT
  Age: 84 Year
  Sex: Male

DRUGS (21)
  1. IRON [Concomitant]
     Active Substance: IRON
     Dosage: 65 MG, UNK
  2. MELATONIN [Concomitant]
     Active Substance: MELATONIN
     Dosage: 10 MG, QHS
  3. PRESERVISION [Concomitant]
     Active Substance: MINERALS\VITAMINS
  4. OXYGEN. [Concomitant]
     Active Substance: OXYGEN
  5. OPSUMIT [Suspect]
     Active Substance: MACITENTAN
     Indication: PULMONARY ARTERIAL HYPERTENSION
     Dosage: 10 MG, UNK
     Route: 048
     Dates: start: 20141104
  6. ASPIRIN 81 [Concomitant]
     Active Substance: ASPIRIN
     Dosage: 81 MG, UNK
  7. NITROGLYCERIN. [Concomitant]
     Active Substance: NITROGLYCERIN
     Dosage: 0.4 MG, UNK
  8. FUROSEMIDE. [Concomitant]
     Active Substance: FUROSEMIDE
     Dosage: 40 MG, UNK
  9. AMITRIPTYLLINE [Concomitant]
     Active Substance: AMITRIPTYLINE
     Dosage: 50 MG, QHS
  10. FUROSEMIDE. [Concomitant]
     Active Substance: FUROSEMIDE
     Dosage: 20 MG, 2 TABS DAILY
  11. DULCOLAX NOS [Concomitant]
     Active Substance: BISACODYL OR DOCUSATE SODIUM
     Dosage: 5 MG, UNK
  12. ALBUTEROL. [Concomitant]
     Active Substance: ALBUTEROL
     Dosage: 2.5 MG/3 ML (0.083%) SOLN
  13. GLUCOSAMINE HYDROCHLORIDE [Concomitant]
     Active Substance: GLUCOSAMINE HYDROCHLORIDE
     Dosage: 1500 MG, UNK
  14. MIRALAX [Concomitant]
     Active Substance: POLYETHYLENE GLYCOL 3350
     Dosage: 17 G, UNK
  15. ATORVASTATIN [Concomitant]
     Active Substance: ATORVASTATIN
     Dosage: 40 MG, QHS
  16. SILDENAFIL. [Concomitant]
     Active Substance: SILDENAFIL
     Dosage: 20 MG, UNK
     Route: 048
  17. METHADONE [Concomitant]
     Active Substance: METHADONE HYDROCHLORIDE
     Dosage: 10 MG, 1 TAB QAM, 2 TABS QPM
  18. COREG [Concomitant]
     Active Substance: CARVEDILOL
     Dosage: 3.125 UNK, UNK
  19. ESBRIET [Concomitant]
     Active Substance: PIRFENIDONE
     Dosage: 267 MG, UNK
  20. MULTIVITAMINS [Concomitant]
     Active Substance: VITAMINS
  21. FLUDROCORTISONE [Concomitant]
     Active Substance: FLUDROCORTISONE
     Dosage: 0.1 MG, UNK

REACTIONS (12)
  - Dyspnoea [Unknown]
  - Hypotension [Unknown]
  - Pulmonary fibrosis [Recovered/Resolved]
  - Vomiting [Unknown]
  - Acute respiratory failure [Recovered/Resolved]
  - Loss of consciousness [Unknown]
  - Injury [Unknown]
  - Oxygen consumption increased [Unknown]
  - Syncope [Recovered/Resolved]
  - Concomitant disease progression [Recovered/Resolved]
  - Fall [Unknown]
  - Exercise tolerance decreased [Recovered/Resolved]
